FAERS Safety Report 8081944-9 (Version None)
Quarter: 2012Q1

REPORT INFORMATION
  Report Type: 
  Country: None (occurrence: None)
  Receive Date: 20120130
  Receipt Date: 20110315
  Transmission Date: 20120608
  Serious: No
  Sender: FDA-Public Use
  Company Number: US-ABBOTT-11P-163-0710673-00

PATIENT
  Sex: Male
  Weight: 103.97 kg

DRUGS (3)
  1. MULTI-VITAMIN [Concomitant]
     Indication: VITAMIN SUPPLEMENTATION
     Route: 048
  2. LUPRON DEPOT [Suspect]
     Indication: PROSTATE CANCER
     Route: 050
     Dates: start: 20100301
  3. FOLIC ACID [Concomitant]
     Indication: VITAMIN SUPPLEMENTATION
     Route: 048

REACTIONS (11)
  - MYALGIA [None]
  - JOINT RANGE OF MOTION DECREASED [None]
  - ARTHRALGIA [None]
  - ARTHRITIS [None]
  - MUSCULAR WEAKNESS [None]
  - FUNGAL INFECTION [None]
  - GAIT DISTURBANCE [None]
  - MUSCLE SPASMS [None]
  - JOINT STIFFNESS [None]
  - HOT FLUSH [None]
  - BREAST ENLARGEMENT [None]
